FAERS Safety Report 4984049-6 (Version None)
Quarter: 2006Q1

REPORT INFORMATION
  Report Type: 
  Country: None (occurrence: None)
  Receive Date: 20060301
  Receipt Date: 20051101
  Transmission Date: 20060701
  Serious: No
  Sender: FDA-Public Use
  Company Number: S05-USA-04821-01

PATIENT
  Age: 76 Year
  Sex: Female

DRUGS (8)
  1. NAMENDA [Suspect]
     Indication: PARKINSON'S DISEASE
     Dosage: 5 MG QD PO
     Route: 048
     Dates: start: 20050801, end: 20050101
  2. NAMENDA [Suspect]
     Indication: PARKINSON'S DISEASE
     Dosage: 5 MG BID PO
     Route: 048
     Dates: start: 20050101, end: 20050101
  3. NAMENDA [Suspect]
     Indication: PARKINSON'S DISEASE
     Dosage: 15 MG QD PO
     Route: 048
     Dates: start: 20050101, end: 20050101
  4. NAMENDA [Suspect]
     Indication: PARKINSON'S DISEASE
     Dosage: 10 MG BID PO
     Route: 048
     Dates: start: 20050101, end: 20051031
  5. STALEVO 100 [Concomitant]
  6. PRELIEF (CALCIUM GLYCEROPHOSPHATE) [Concomitant]
  7. LOTREL [Concomitant]
  8. LEXAPRO [Concomitant]

REACTIONS (3)
  - DYSPNOEA [None]
  - PAIN IN EXTREMITY [None]
  - TREMOR [None]
